FAERS Safety Report 21917931 (Version 1)
Quarter: 2023Q1

REPORT INFORMATION
  Report Type: Spontaneous
  Country: RS (occurrence: RS)
  Receive Date: 20230127
  Receipt Date: 20230127
  Transmission Date: 20230418
  Serious: Yes (Other)
  Sender: FDA-Public Use
  Company Number: RS-SA-SAC20230125000279

PATIENT
  Age: 59 Year
  Sex: Female

DRUGS (4)
  1. ARAVA [Suspect]
     Active Substance: LEFLUNOMIDE
     Indication: Rheumatoid arthritis
     Dosage: 20 MG, QD
     Route: 048
     Dates: start: 2021, end: 2021
  2. PRONISON [Concomitant]
     Active Substance: PREDNISONE
     Indication: Rheumatoid arthritis
     Dosage: 10 MG, QD
  3. SULFASALAZINE [Concomitant]
     Active Substance: SULFASALAZINE
     Indication: Rheumatoid arthritis
     Dosage: 1.5 G, QD
  4. METHOTREXATE [Concomitant]
     Active Substance: METHOTREXATE
     Dosage: UNK

REACTIONS (5)
  - Rheumatoid arthritis [Unknown]
  - COVID-19 [Unknown]
  - Peripheral swelling [Unknown]
  - Arthralgia [Unknown]
  - Transaminases increased [Unknown]

NARRATIVE: CASE EVENT DATE: 20210101
